FAERS Safety Report 6406537-8 (Version None)
Quarter: 2009Q4

REPORT INFORMATION
  Report Type: 
  Country: None (occurrence: None)
  Receive Date: 20091019
  Receipt Date: 20091002
  Transmission Date: 20100525
  Serious: Yes (Hospitalization, Other)
  Sender: FDA-Public Use
  Company Number: IE-GENENTECH-292003

PATIENT
  Age: 55 Year
  Sex: Male

DRUGS (9)
  1. MABTHERA [Suspect]
     Indication: DRUG USE FOR UNKNOWN INDICATION
     Dosage: 1000 MG, UNK
     Route: 065
     Dates: start: 20090925
  2. SODIUM CHLORIDE [Concomitant]
     Indication: DRUG USE FOR UNKNOWN INDICATION
  3. METHYLPREDNISOLONE [Concomitant]
     Indication: DRUG USE FOR UNKNOWN INDICATION
  4. PARACETAMOL [Concomitant]
     Indication: DRUG USE FOR UNKNOWN INDICATION
  5. PIRITON [Concomitant]
     Indication: DRUG USE FOR UNKNOWN INDICATION
  6. CHLORPHENIRAMINE MALEATE [Concomitant]
     Indication: DRUG USE FOR UNKNOWN INDICATION
  7. METHOTREXATE [Concomitant]
     Indication: DRUG USE FOR UNKNOWN INDICATION
  8. CLONFOLIC [Concomitant]
     Indication: DRUG USE FOR UNKNOWN INDICATION
  9. CORTISONE [Concomitant]
     Indication: DRUG USE FOR UNKNOWN INDICATION

REACTIONS (12)
  - ATRIOVENTRICULAR BLOCK [None]
  - BLOOD PRESSURE ABNORMAL [None]
  - BRADYCARDIA [None]
  - COMA [None]
  - DRUG INEFFECTIVE [None]
  - ELECTROCARDIOGRAM ABNORMAL [None]
  - EYELID OEDEMA [None]
  - HYPOTENSION [None]
  - RASH ERYTHEMATOUS [None]
  - RASH PRURITIC [None]
  - TACHYCARDIA [None]
  - UNRESPONSIVE TO STIMULI [None]
